FAERS Safety Report 14270750 (Version 2)
Quarter: 2018Q1

REPORT INFORMATION
  Report Type: Spontaneous
  Country: US (occurrence: US)
  Receive Date: 20171211
  Receipt Date: 20180126
  Transmission Date: 20180508
  Serious: Yes (Hospitalization, Other)
  Sender: FDA-Public Use
  Company Number: US-OTSUKA-14641294

PATIENT
  Age: 34 Year
  Sex: Female

DRUGS (4)
  1. ABILIFY [Suspect]
     Active Substance: ARIPIPRAZOLE
     Indication: BIPOLAR I DISORDER
     Dosage: 12MAR09=2MG QD,INCREASED TO 5MG QD AND 10MG QD ON 18APR09
     Route: 048
     Dates: start: 20090312
  2. ABILIFY [Suspect]
     Active Substance: ARIPIPRAZOLE
     Indication: PRODUCT USED FOR UNKNOWN INDICATION
  3. ALPRAZOLAM. [Suspect]
     Active Substance: ALPRAZOLAM
     Indication: ANXIETY
     Dosage: ON 18-APR-2009 - 30 TO 45 TABLETS WAS TAKEN.   0.5MG/D RECEIVED ONLY OCCASIONALLY
     Route: 065
     Dates: start: 20090418
  4. WELLBUTRIN [Suspect]
     Active Substance: BUPROPION HYDROCHLORIDE
     Indication: PRODUCT USED FOR UNKNOWN INDICATION
     Dosage: TABLET
     Route: 065
     Dates: end: 20090416

REACTIONS (3)
  - Aggression [Recovering/Resolving]
  - Consciousness fluctuating [Unknown]
  - Suicide attempt [Unknown]

NARRATIVE: CASE EVENT DATE: 200904
